FAERS Safety Report 8249459 (Version 2)
Quarter: 2014Q4

REPORT INFORMATION
  Report Type: Spontaneous
  Country: US (occurrence: US)
  Receive Date: 20111117
  Receipt Date: 20141124
  Transmission Date: 20150529
  Serious: No
  Sender: FDA-Public Use
  Company Number: US-MYLANLABS-2011S1018535

PATIENT
  Age: 59 Year
  Sex: Female

DRUGS (2)
  1. NADOLOL TABLETS, USP [Suspect]
     Active Substance: NADOLOL
     Indication: TACHYCARDIA
     Dosage: 20 MG,QD
     Route: 048
     Dates: start: 20110724, end: 20110828
  2. CORGARD [Suspect]
     Active Substance: NADOLOL
     Indication: TACHYCARDIA
     Dosage: UNK
     Route: 048
     Dates: start: 20110829

REACTIONS (12)
  - Feeling abnormal [Not Recovered/Not Resolved]
  - Back pain [Not Recovered/Not Resolved]
  - Nausea [Not Recovered/Not Resolved]
  - Flank pain [Not Recovered/Not Resolved]
  - Dry eye [Not Recovered/Not Resolved]
  - Vision blurred [Not Recovered/Not Resolved]
  - Abdominal pain upper [Not Recovered/Not Resolved]
  - Micturition urgency [Not Recovered/Not Resolved]
  - Glossodynia [Not Recovered/Not Resolved]
  - Eye irritation [Not Recovered/Not Resolved]
  - Pyrexia [Not Recovered/Not Resolved]
  - Malaise [Not Recovered/Not Resolved]

NARRATIVE: CASE EVENT DATE: 20110818
